FAERS Safety Report 5557403-1 (Version None)
Quarter: 2007Q4

REPORT INFORMATION
  Report Type: 
  Country: None (occurrence: None)
  Receive Date: 20071211
  Receipt Date: 20071126
  Transmission Date: 20080405
  Serious: Yes (Hospitalization, Other)
  Sender: FDA-Public Use
  Company Number: GXKR2007PL10219

PATIENT
  Age: 30 Year
  Sex: Female

DRUGS (2)
  1. VERAPAMIL [Suspect]
     Indication: PREGNANCY INDUCED HYPERTENSION
  2. METHYLDOPA [Suspect]
     Indication: PREGNANCY INDUCED HYPERTENSION

REACTIONS (8)
  - BLOOD PRESSURE INCREASED [None]
  - BREATH ODOUR [None]
  - CAESAREAN SECTION [None]
  - DERMATITIS BULLOUS [None]
  - DRUG EXPOSURE DURING PREGNANCY [None]
  - PEMPHIGUS [None]
  - PLASMAPHERESIS [None]
  - TREATMENT FAILURE [None]
